FAERS Safety Report 24121957 (Version 2)
Quarter: 2024Q3

REPORT INFORMATION
  Report Type: Spontaneous
  Country: US (occurrence: US)
  Receive Date: 20240722
  Receipt Date: 20240903
  Transmission Date: 20241016
  Serious: Yes (Other)
  Sender: TEVA
  Company Number: US-TEVA-VS-3220643

PATIENT
  Age: 51 Year
  Sex: Female

DRUGS (4)
  1. OXALIPLATIN [Suspect]
     Active Substance: OXALIPLATIN
     Indication: Ovarian cancer
     Dosage: TWO CYCLES  ON DAYS 1-14
     Route: 048
  2. CAPECITABINE [Suspect]
     Active Substance: CAPECITABINE
     Indication: Ovarian cancer
     Dosage: TWO CYCLES ON DAYS 1 TO 14.
     Route: 048
  3. BEVACIZUMAB [Concomitant]
     Active Substance: BEVACIZUMAB
     Indication: Ovarian cancer
     Route: 065
  4. ENTRECTINIB [Suspect]
     Active Substance: ENTRECTINIB
     Indication: Ovarian cancer
     Route: 048

REACTIONS (2)
  - Diarrhoea [Unknown]
  - Drug ineffective [Unknown]
